FAERS Safety Report 12909452 (Version 1)
Quarter: 2016Q4

REPORT INFORMATION
  Report Type: Spontaneous
  Country: GB (occurrence: GB)
  Receive Date: 20161104
  Receipt Date: 20161104
  Transmission Date: 20170207
  Serious: Yes (Hospitalization, Other)
  Sender: FDA-Public Use
  Company Number: GB-ASTRAZENECA-2016SF13263

PATIENT
  Age: 29 Year
  Sex: Female

DRUGS (9)
  1. QUETIAPINE. [Suspect]
     Active Substance: QUETIAPINE
     Route: 048
  2. DIAZEPAM. [Concomitant]
     Active Substance: DIAZEPAM
  3. SITAGLIPTIN [Concomitant]
     Active Substance: SITAGLIPTIN
  4. ATORVASTATIN [Concomitant]
     Active Substance: ATORVASTATIN
  5. CANAGLIFLOZIN [Concomitant]
     Active Substance: CANAGLIFLOZIN
  6. HALOPERIDOL. [Suspect]
     Active Substance: HALOPERIDOL
     Dosage: 10.0MG UNKNOWN
     Route: 048
     Dates: start: 20160922, end: 20161003
  7. METFORMIN [Concomitant]
     Active Substance: METFORMIN HYDROCHLORIDE
  8. SODIUM VALPROATE [Concomitant]
     Active Substance: VALPROATE SODIUM
  9. PROPRANOLOL [Concomitant]
     Active Substance: PROPRANOLOL\PROPRANOLOL HYDROCHLORIDE

REACTIONS (1)
  - Neuroleptic malignant syndrome [Not Recovered/Not Resolved]

NARRATIVE: CASE EVENT DATE: 20160930
